FAERS Safety Report 12120327 (Version 2)
Quarter: 2016Q2

REPORT INFORMATION
  Report Type: Report from Study
  Country: US (occurrence: US)
  Receive Date: 20160226
  Receipt Date: 20160407
  Transmission Date: 20160815
  Serious: No
  Sender: FDA-Public Use
  Company Number: PHEH2016US004708

PATIENT
  Sex: Male

DRUGS (6)
  1. AMPYRA [Suspect]
     Active Substance: DALFAMPRIDINE
     Indication: MULTIPLE SCLEROSIS
     Dosage: 10 MG, QD
     Route: 048
     Dates: start: 20160309
  2. TECFIDERA [Suspect]
     Active Substance: DIMETHYL FUMARATE
     Indication: MULTIPLE SCLEROSIS
     Dosage: UNK
     Route: 048
     Dates: start: 2014, end: 201504
  3. GILENYA [Suspect]
     Active Substance: FINGOLIMOD HYDROCHLORIDE
     Indication: MULTIPLE SCLEROSIS
     Dosage: UNK
     Route: 048
     Dates: start: 201504
  4. BACLOFEN. [Suspect]
     Active Substance: BACLOFEN
     Indication: GAIT DISTURBANCE
     Dosage: 30 MG, QD
     Route: 048
  5. TYSABRI [Concomitant]
     Active Substance: NATALIZUMAB
     Indication: PRODUCT USED FOR UNKNOWN INDICATION
     Dosage: UNK
     Route: 065
     Dates: start: 201602
  6. AMPYRA [Suspect]
     Active Substance: DALFAMPRIDINE
     Indication: GAIT DISTURBANCE
     Dosage: 10 MG, BID
     Route: 048
     Dates: start: 2014

REACTIONS (10)
  - Dyspnoea [Recovered/Resolved]
  - Micturition urgency [Not Recovered/Not Resolved]
  - Gait disturbance [Recovering/Resolving]
  - Urinary tract infection [Not Recovered/Not Resolved]
  - Drug intolerance [Unknown]
  - Cardiac disorder [Recovered/Resolved]
  - Peripheral swelling [Recovered/Resolved]
  - Dysuria [Not Recovered/Not Resolved]
  - Abdominal discomfort [Recovered/Resolved]
  - Concomitant disease aggravated [Recovering/Resolving]
